FAERS Safety Report 14633443 (Version 1)
Quarter: 2018Q1

REPORT INFORMATION
  Report Type: Spontaneous
  Country: FR (occurrence: FR)
  Receive Date: 20180313
  Receipt Date: 20180313
  Transmission Date: 20180509
  Serious: Yes (Other)
  Sender: FDA-Public Use
  Company Number: FR-MERCK KGAA-2043667

PATIENT
  Age: 36 Year
  Sex: Female

DRUGS (1)
  1. NOVOTHYROX [Suspect]
     Active Substance: LEVOTHYROXINE SODIUM
     Indication: PRODUCT USED FOR UNKNOWN INDICATION

REACTIONS (17)
  - Myalgia [None]
  - Pain [None]
  - Hyperthyroidism [None]
  - Mood altered [None]
  - Loss of personal independence in daily activities [None]
  - Headache [None]
  - Agitation [None]
  - Personal relationship issue [None]
  - Social avoidant behaviour [None]
  - Peripheral coldness [None]
  - Irritability [None]
  - Blood thyroid stimulating hormone increased [None]
  - Hypothyroidism [None]
  - Insomnia [None]
  - Sleep disorder [None]
  - Blood thyroid stimulating hormone decreased [None]
  - Fatigue [None]

NARRATIVE: CASE EVENT DATE: 20170106
